FAERS Safety Report 25043192 (Version 2)
Quarter: 2025Q1

REPORT INFORMATION
  Report Type: Report from Study
  Country: US (occurrence: US)
  Receive Date: 20250305
  Receipt Date: 20250326
  Transmission Date: 20250409
  Serious: Yes (Other)
  Sender: ABBVIE
  Company Number: US-ABBVIE-6154594

PATIENT
  Age: 61 Year
  Sex: Male

DRUGS (1)
  1. RINVOQ [Suspect]
     Active Substance: UPADACITINIB
     Indication: Rheumatoid arthritis
     Route: 048
     Dates: start: 20240722, end: 20250205

REACTIONS (4)
  - Ligament operation [Recovering/Resolving]
  - Drug ineffective [Unknown]
  - Rotator cuff syndrome [Recovering/Resolving]
  - Tendon disorder [Recovering/Resolving]
